FAERS Safety Report 12316233 (Version 1)
Quarter: 2016Q2

REPORT INFORMATION
  Report Type: Spontaneous
  Country: US (occurrence: US)
  Receive Date: 20160428
  Receipt Date: 20160428
  Transmission Date: 20160815
  Serious: Yes (Hospitalization, Other)
  Sender: FDA-Public Use
  Company Number: US-TEVA-655289USA

PATIENT
  Sex: Male
  Weight: 67.1 kg

DRUGS (1)
  1. DAUNORUBICIN [Suspect]
     Active Substance: DAUNORUBICIN
     Indication: B PRECURSOR TYPE ACUTE LEUKAEMIA
     Dosage: 5MG/ML- 25MG PER M2
     Dates: start: 20160408

REACTIONS (3)
  - Pain [Unknown]
  - Necrotising fasciitis [Unknown]
  - Myositis [Unknown]
